FAERS Safety Report 16243599 (Version 1)
Quarter: 2019Q2

REPORT INFORMATION
  Report Type: Spontaneous
  Country: US (occurrence: US)
  Receive Date: 20190425
  Receipt Date: 20190425
  Transmission Date: 20190711
  Serious: Yes (Hospitalization)
  Sender: FDA-Public Use
  Company Number: None

PATIENT
  Age: 52 Year
  Sex: Female

DRUGS (11)
  1. AUBAGIO [Concomitant]
     Active Substance: TERIFLUNOMIDE
  2. BACLOFEN. [Concomitant]
     Active Substance: BACLOFEN
  3. FLOVENT [Concomitant]
     Active Substance: FLUTICASONE PROPIONATE
  4. IBANDRONATE [Concomitant]
     Active Substance: IBANDRONATE SODIUM
  5. AMPYRA [Concomitant]
     Active Substance: DALFAMPRIDINE
  6. CLONAZEPAM. [Concomitant]
     Active Substance: CLONAZEPAM
  7. ORENCIA [Suspect]
     Active Substance: ABATACEPT
     Indication: RHEUMATOID ARTHRITIS
     Dosage: ?          OTHER FREQUENCY:WEEKLY;?
     Route: 058
     Dates: start: 20120214
  8. MONTELUKAST [Concomitant]
     Active Substance: MONTELUKAST SODIUM
  9. DYAZIDE [Concomitant]
     Active Substance: HYDROCHLOROTHIAZIDE\TRIAMTERENE
  10. VITAMIN K [Concomitant]
     Active Substance: PHYTONADIONE
  11. VESICARE [Concomitant]
     Active Substance: SOLIFENACIN SUCCINATE

REACTIONS (2)
  - Therapy cessation [None]
  - Limb operation [None]

NARRATIVE: CASE EVENT DATE: 20190218
